FAERS Safety Report 8637128 (Version 3)
Quarter: 2014Q1

REPORT INFORMATION
  Report Type: Spontaneous
  Country: US (occurrence: US)
  Receive Date: 20120627
  Receipt Date: 20140117
  Transmission Date: 20141002
  Serious: No
  Sender: FDA-Public Use
  Company Number: US-ASTRAZENECA-2012SE35691

PATIENT
  Age: 56 Year
  Sex: Female

DRUGS (33)
  1. NEXIUM [Suspect]
     Indication: GASTROOESOPHAGEAL REFLUX DISEASE
     Route: 048
     Dates: start: 20030513
  2. NEXIUM [Suspect]
     Indication: GASTROOESOPHAGEAL REFLUX DISEASE
     Dosage: ONCE
     Route: 048
     Dates: start: 2005
  3. NEXIUM [Suspect]
     Indication: GASTROOESOPHAGEAL REFLUX DISEASE
     Route: 048
     Dates: start: 20050303
  4. PANTOPRAZOLE [Concomitant]
     Dates: start: 20080217
  5. PREVACID [Concomitant]
  6. ACIPHEX [Concomitant]
  7. TUMS [Concomitant]
  8. ALKA SELTZER [Concomitant]
  9. MILK OF MAGNESIA [Concomitant]
  10. GAVISCON [Concomitant]
  11. PEPTO BISMOL [Concomitant]
  12. ROLAIDS [Concomitant]
  13. MYLANTA [Concomitant]
  14. POTASSIUM [Concomitant]
     Dosage: 10 MEQ
     Dates: start: 20130314
  15. VIT C [Concomitant]
  16. D3 SUPPLEMENT [Concomitant]
  17. DITROPAN XL [Concomitant]
  18. DITROPAN XL [Concomitant]
     Dates: start: 20050102
  19. SEROQUEL [Concomitant]
     Dates: start: 20080207
  20. OCUTIVE [Concomitant]
  21. B12 [Concomitant]
  22. ALLEGRA [Concomitant]
     Dates: start: 20010126
  23. CLONAZAPAM [Concomitant]
     Dates: start: 20080720
  24. CLONAZAPAM [Concomitant]
     Dates: start: 20050308
  25. BIOTIN [Concomitant]
  26. CYMBALTA [Concomitant]
     Dates: start: 20090424
  27. LIDODERM [Concomitant]
  28. ASPIRIN [Concomitant]
  29. FLUTICASONE [Concomitant]
     Dosage: 50 MCG
     Dates: start: 20110304
  30. PREDNISONE [Concomitant]
     Dates: start: 20110919
  31. EFFEXOR XR [Concomitant]
     Dates: start: 20050105
  32. TOPAMAX [Concomitant]
     Dates: start: 20050105
  33. ZYPREXA [Concomitant]
     Dates: start: 20050407

REACTIONS (10)
  - Osteoporosis [Unknown]
  - Multiple fractures [Unknown]
  - Osteopenia [Unknown]
  - Fall [Unknown]
  - Arthritis [Unknown]
  - Cartilage atrophy [Unknown]
  - Calcium deficiency [Unknown]
  - Bone disorder [Unknown]
  - Ehlers-Danlos syndrome [Unknown]
  - Epidermolysis bullosa [Unknown]
